FAERS Safety Report 24066048 (Version 2)
Quarter: 2024Q3

REPORT INFORMATION
  Report Type: Spontaneous
  Country: US (occurrence: US)
  Receive Date: 20240709
  Receipt Date: 20240814
  Transmission Date: 20241017
  Serious: Yes (Other)
  Sender: BRAEBURN PHARMACEUTICALS
  Company Number: US-BRAEBURN-US-BRA-24-000608

PATIENT
  Sex: Female

DRUGS (4)
  1. BRIXADI [Suspect]
     Active Substance: BUPRENORPHINE
     Indication: Chronic hepatitis C
     Dosage: 96 MILLIGRAM, MONTHLY
     Route: 058
  2. BRIXADI [Suspect]
     Active Substance: BUPRENORPHINE
     Indication: Drug dependence
  3. MAVYRET [Concomitant]
     Active Substance: GLECAPREVIR\PIBRENTASVIR
     Indication: Product used for unknown indication
     Dosage: UNK
     Route: 065
  4. SUBOXONE [Concomitant]
     Active Substance: BUPRENORPHINE HYDROCHLORIDE\NALOXONE HYDROCHLORIDE
     Indication: Product used for unknown indication
     Dosage: UNK
     Route: 065

REACTIONS (3)
  - Hepatitis C [Unknown]
  - Maternal exposure during pregnancy [Unknown]
  - Product use in unapproved indication [Unknown]
